FAERS Safety Report 10685444 (Version 1)
Quarter: 2014Q4

REPORT INFORMATION
  Report Type: Spontaneous
  Country: US (occurrence: None)
  Receive Date: 20141230
  Receipt Date: 20141230
  Transmission Date: 20150529
  Serious: Yes (Hospitalization)
  Sender: FDA-Public Use
  Company Number: None

PATIENT
  Age: 2 Year
  Sex: Male
  Weight: 13.7 kg

DRUGS (4)
  1. DAUNORUBICIN [Suspect]
     Active Substance: DAUNORUBICIN
     Dates: end: 20141215
  2. DEXAMETHASONE. [Concomitant]
     Active Substance: DEXAMETHASONE
     Dates: end: 20141220
  3. VINCRISTINE SULFATE. [Suspect]
     Active Substance: VINCRISTINE SULFATE
     Dates: end: 20141215
  4. ONCASPAR [Suspect]
     Active Substance: PEGASPARGASE
     Dates: end: 20141204

REACTIONS (16)
  - Cerebral haemorrhage [None]
  - Meningitis fungal [None]
  - Pneumothorax [None]
  - Respiratory distress [None]
  - Pulmonary vascular disorder [None]
  - Arterial occlusive disease [None]
  - Bronchial obstruction [None]
  - Candida test positive [None]
  - Pleural effusion [None]
  - Mental status changes [None]
  - Central nervous system lesion [None]
  - Stomatitis [None]
  - Pneumonia necrotising [None]
  - Central nervous system infection [None]
  - Diarrhoea [None]
  - Skin discolouration [None]

NARRATIVE: CASE EVENT DATE: 20141222
